FAERS Safety Report 8556545-6 (Version None)
Quarter: 2012Q3

REPORT INFORMATION
  Report Type: 
  Country: None (occurrence: None)
  Receive Date: 20120801
  Receipt Date: 20120724
  Transmission Date: 20120928
  Serious: Yes (Hospitalization)
  Sender: FDA-Public Use
  Company Number: ZA-SANOFI-AVENTIS-2012SA052375

PATIENT
  Age: 50 Year
  Sex: Male

DRUGS (3)
  1. LANTUS [Suspect]
     Indication: TYPE 2 DIABETES MELLITUS
     Dosage: DOSE:10 UNIT(S)
     Route: 058
     Dates: start: 20120601
  2. LANTUS [Suspect]
     Indication: DEVICE THERAPY
     Dates: start: 20120601
  3. GLUCOPHAGE [Concomitant]
     Route: 048
     Dates: start: 19990101

REACTIONS (2)
  - COUGH [None]
  - PNEUMONIA [None]
